FAERS Safety Report 15084277 (Version 1)
Quarter: 2018Q2

REPORT INFORMATION
  Report Type: Spontaneous
  Country: CA (occurrence: CA)
  Receive Date: 20180628
  Receipt Date: 20180628
  Transmission Date: 20180711
  Serious: Yes (Life-Threatening)
  Sender: FDA-Public Use
  Company Number: CA-TEVA-2018-CA-912643

PATIENT
  Age: 64 Year
  Sex: Male
  Weight: 72.64 kg

DRUGS (1)
  1. NAPROXEN. [Suspect]
     Active Substance: NAPROXEN
     Indication: PAIN IN EXTREMITY
     Route: 048

REACTIONS (2)
  - Rash generalised [Recovered/Resolved]
  - Angioedema [Recovered/Resolved]
